FAERS Safety Report 19495868 (Version 1)
Quarter: 2021Q3

REPORT INFORMATION
  Report Type: Other
  Country: FR (occurrence: FR)
  Receive Date: 20210706
  Receipt Date: 20210706
  Transmission Date: 20211014
  Serious: Yes (Other)
  Sender: FDA-Public Use
  Company Number: FR-ROCHE-2859617

PATIENT
  Age: 57 Year
  Sex: Male

DRUGS (2)
  1. PREDNISONE. [Concomitant]
     Active Substance: PREDNISONE
  2. TOCILIZUMAB. [Suspect]
     Active Substance: TOCILIZUMAB
     Indication: CONNECTIVE TISSUE DISORDER
     Route: 042

REACTIONS (3)
  - Myositis [Recovering/Resolving]
  - Myocarditis [Unknown]
  - Pericardial effusion [Unknown]
